FAERS Safety Report 9646149 (Version 1)
Quarter: 2013Q4

REPORT INFORMATION
  Report Type: Spontaneous
  Country: TN (occurrence: TN)
  Receive Date: 20131025
  Receipt Date: 20131025
  Transmission Date: 20140711
  Serious: Yes (Death, Other)
  Sender: FDA-Public Use
  Company Number: PHHY2013TN116635

PATIENT
  Age: 32 Year
  Sex: Female

DRUGS (1)
  1. METHOTREXATE [Suspect]
     Indication: ECTOPIC PREGNANCY TERMINATION
     Dosage: 75 MG, UNK

REACTIONS (17)
  - Renal failure [Fatal]
  - Pancytopenia [Fatal]
  - Hepatocellular injury [Fatal]
  - Cholestasis [Fatal]
  - Bone marrow failure [Fatal]
  - Septic shock [Fatal]
  - Toxicity to various agents [Fatal]
  - Diarrhoea haemorrhagic [Unknown]
  - Dysphagia [Unknown]
  - Odynophagia [Unknown]
  - Skin lesion [Unknown]
  - Erythema [Unknown]
  - Skin hyperpigmentation [Unknown]
  - Macule [Unknown]
  - Mucosal inflammation [Unknown]
  - Pyrexia [Unknown]
  - Maternal exposure during pregnancy [Unknown]
